FAERS Safety Report 22214366 (Version 1)
Quarter: 2023Q2

REPORT INFORMATION
  Report Type: Spontaneous
  Country: BR (occurrence: BR)
  Receive Date: 20230414
  Receipt Date: 20230414
  Transmission Date: 20230722
  Serious: Yes (Other)
  Sender: FDA-Public Use
  Company Number: BR-ZAMBON SWITZERLAND LTD.-2023BR000024

PATIENT

DRUGS (1)
  1. FOSFOMYCIN TROMETHAMINE [Suspect]
     Active Substance: FOSFOMYCIN TROMETHAMINE
     Indication: Urinary tract infection
     Dosage: 1 DF
     Route: 048
     Dates: start: 20230310, end: 20230313

REACTIONS (12)
  - Immunodeficiency [Unknown]
  - Dyspnoea [Recovered/Resolved]
  - Pharyngeal swelling [Unknown]
  - Mouth swelling [Unknown]
  - Urticaria [Recovered/Resolved]
  - Erythema [Recovering/Resolving]
  - Rash [Unknown]
  - Diarrhoea [Unknown]
  - Headache [Recovering/Resolving]
  - Abdominal pain upper [Recovered/Resolved]
  - Pain [Unknown]
  - Rhinitis [Recovering/Resolving]

NARRATIVE: CASE EVENT DATE: 20230310
